FAERS Safety Report 19226500 (Version 2)
Quarter: 2021Q2

REPORT INFORMATION
  Report Type: Spontaneous
  Country: JP (occurrence: JP)
  Receive Date: 20210506
  Receipt Date: 20210514
  Transmission Date: 20210717
  Serious: Yes (Hospitalization, Other)
  Sender: FDA-Public Use
  Company Number: JP-TEVA-2021-JP-1903109

PATIENT
  Age: 79 Year
  Sex: Male

DRUGS (6)
  1. RITUXIMAB. [Suspect]
     Active Substance: RITUXIMAB
     Indication: DIFFUSE LARGE B-CELL LYMPHOMA
     Dosage: (1ST CYCLE)
     Route: 065
  2. BENDAMUSTINE HYDROCHLORIDE. [Suspect]
     Active Substance: BENDAMUSTINE HYDROCHLORIDE
     Indication: DIFFUSE LARGE B-CELL LYMPHOMA
     Dosage: (1ST CYCLE)
     Route: 042
  3. BENDAMUSTINE HYDROCHLORIDE. [Suspect]
     Active Substance: BENDAMUSTINE HYDROCHLORIDE
     Dosage: (3RD CYCLE)
     Route: 042
     Dates: start: 20210422
  4. RITUXIMAB. [Suspect]
     Active Substance: RITUXIMAB
     Dosage: (2ND CYCLE)
     Route: 065
     Dates: start: 20210406, end: 20210407
  5. RITUXIMAB. [Suspect]
     Active Substance: RITUXIMAB
     Dosage: (3RD CYCLE)
     Route: 065
     Dates: start: 20210422
  6. BENDAMUSTINE HYDROCHLORIDE. [Suspect]
     Active Substance: BENDAMUSTINE HYDROCHLORIDE
     Dosage: (2ND CYCLE)
     Route: 042
     Dates: start: 20210406, end: 20210407

REACTIONS (3)
  - Haematochezia [Recovered/Resolved]
  - Vascular pain [Recovered/Resolved]
  - Product use in unapproved indication [Unknown]

NARRATIVE: CASE EVENT DATE: 20210412
